FAERS Safety Report 8288011-X (Version None)
Quarter: 2012Q2

REPORT INFORMATION
  Report Type: 
  Country: None (occurrence: None)
  Receive Date: 20120416
  Receipt Date: 20120410
  Transmission Date: 20120825
  Serious: Yes (Other)
  Sender: FDA-Public Use
  Company Number: US-GLAXOSMITHKLINE-A0967950A

PATIENT
  Age: 81 Year
  Sex: Male
  Weight: 69.1 kg

DRUGS (3)
  1. XOPENEX [Concomitant]
  2. ADVAIR DISKUS 100/50 [Suspect]
     Indication: PRODUCT USED FOR UNKNOWN INDICATION
     Route: 055
     Dates: start: 20080401
  3. SPIRIVA [Concomitant]

REACTIONS (2)
  - PRODUCT QUALITY ISSUE [None]
  - PULMONARY FUNCTION TEST DECREASED [None]
